FAERS Safety Report 12221120 (Version 1)
Quarter: 2016Q1

REPORT INFORMATION
  Report Type: Spontaneous
  Country: US (occurrence: None)
  Receive Date: 20160329
  Receipt Date: 20160329
  Transmission Date: 20160526
  Serious: Yes (Life-Threatening, Hospitalization)
  Sender: FDA-Public Use
  Company Number: None

PATIENT
  Age: 69 Year
  Sex: Male
  Weight: 74.84 kg

DRUGS (5)
  1. HYDROCHI OROTHIAZIDE [Concomitant]
  2. ATORVASTIN [Concomitant]
     Active Substance: ATORVASTATIN
  3. VIOXX [Suspect]
     Active Substance: ROFECOXIB
     Indication: BACK PAIN
     Dosage: 30 TABLET(S) TWICE A DAY TAKEN BY MOUTH
     Route: 048
  4. METOPROLOL SUCCER [Concomitant]
  5. NIFEDIPINE ER [Concomitant]
     Active Substance: NIFEDIPINE

REACTIONS (4)
  - Pain [None]
  - Cerebrovascular accident [None]
  - Tooth loss [None]
  - Balance disorder [None]

NARRATIVE: CASE EVENT DATE: 20111115
